FAERS Safety Report 6358492-7 (Version None)
Quarter: 2009Q3

REPORT INFORMATION
  Report Type: 
  Country: None (occurrence: None)
  Receive Date: 20090916
  Receipt Date: 20090805
  Transmission Date: 20100115
  Serious: Yes (Death, Hospitalization, Other)
  Sender: FDA-Public Use
  Company Number: US-BAXTER-2009BH006541

PATIENT
  Age: 67 Year
  Sex: Female

DRUGS (5)
  1. HEPARIN SODIUM INJECTION [Suspect]
     Indication: DRUG USE FOR UNKNOWN INDICATION
     Route: 058
     Dates: start: 20071221, end: 20071223
  2. HEPARIN SODIUM INJECTION [Suspect]
     Route: 058
     Dates: start: 20071228, end: 20080105
  3. HEPARIN SODIUM INJECTION [Suspect]
     Route: 058
     Dates: start: 20080110, end: 20080112
  4. PREDNISONE [Concomitant]
     Indication: DRUG USE FOR UNKNOWN INDICATION
     Route: 065
  5. IMURAN [Concomitant]
     Indication: DRUG USE FOR UNKNOWN INDICATION
     Route: 065

REACTIONS (18)
  - BLISTER [None]
  - DIARRHOEA [None]
  - DYSPNOEA [None]
  - ENCEPHALOPATHY [None]
  - ENTERITIS [None]
  - GLOMERULONEPHRITIS [None]
  - HEPATIC CIRRHOSIS [None]
  - HYPOTENSION [None]
  - LEUKOCYTOSIS [None]
  - MENTAL STATUS CHANGES [None]
  - NAUSEA [None]
  - OEDEMA [None]
  - RENAL FAILURE [None]
  - RESPIRATORY DISTRESS [None]
  - SEPTIC SHOCK [None]
  - TACHYCARDIA [None]
  - UNRESPONSIVE TO STIMULI [None]
  - URINARY TRACT INFECTION [None]
